FAERS Safety Report 13138364 (Version 1)
Quarter: 2017Q1

REPORT INFORMATION
  Report Type: Spontaneous
  Country: US (occurrence: US)
  Receive Date: 20170123
  Receipt Date: 20170123
  Transmission Date: 20170428
  Serious: Yes (Hospitalization)
  Sender: FDA-Public Use
  Company Number: None

PATIENT
  Age: 42 Year
  Sex: Female

DRUGS (10)
  1. PROBIOTIC [Concomitant]
     Active Substance: PROBIOTICS NOS
  2. ZYRTEC [Concomitant]
     Active Substance: CETIRIZINE HYDROCHLORIDE
  3. ATIVAN [Concomitant]
     Active Substance: LORAZEPAM
  4. CAPECITABINE 500MG [Suspect]
     Active Substance: CAPECITABINE
     Indication: HEPATIC CANCER
     Route: 048
  5. LETROZOLE. [Concomitant]
     Active Substance: LETROZOLE
  6. MULTI VITAMIN [Concomitant]
     Active Substance: VITAMINS
  7. XANAX [Concomitant]
     Active Substance: ALPRAZOLAM
  8. IBRANCE [Suspect]
     Active Substance: PALBOCICLIB
     Indication: HEPATIC CANCER
     Route: 048
     Dates: start: 20160823
  9. LISINOPRIL. [Concomitant]
     Active Substance: LISINOPRIL
  10. VITAMIN B12 [Concomitant]
     Active Substance: CYANOCOBALAMIN

REACTIONS (4)
  - Respiratory disorder [None]
  - Pain [None]
  - Hepatic enzyme increased [None]
  - Skin discolouration [None]

NARRATIVE: CASE EVENT DATE: 20170110
